FAERS Safety Report 12572658 (Version 1)
Quarter: 2016Q3

REPORT INFORMATION
  Report Type: Report from Study
  Country: US (occurrence: US)
  Receive Date: 20160720
  Receipt Date: 20160720
  Transmission Date: 20161109
  Serious: Yes (Other)
  Sender: FDA-Public Use
  Company Number: US-AMGEN-USASL2016092028

PATIENT
  Age: 64 Year
  Sex: Female

DRUGS (1)
  1. ENBREL [Suspect]
     Active Substance: ETANERCEPT
     Indication: RHEUMATOID ARTHRITIS
     Dosage: UNK, UNK WEEKLY
     Route: 065
     Dates: start: 201406

REACTIONS (6)
  - Rheumatoid arthritis [Unknown]
  - Pain [Recovering/Resolving]
  - Activities of daily living impaired [Not Recovered/Not Resolved]
  - Fatigue [Unknown]
  - Injection site pain [Unknown]
  - Oesophageal operation [Unknown]

NARRATIVE: CASE EVENT DATE: 2015
